FAERS Safety Report 11791643 (Version 1)
Quarter: 2015Q4

REPORT INFORMATION
  Report Type: Spontaneous
  Country: DE (occurrence: DE)
  Receive Date: 20151201
  Receipt Date: 20151201
  Transmission Date: 20160305
  Serious: Yes (Hospitalization)
  Sender: FDA-Public Use
  Company Number: DE-TEVA-611143GER

PATIENT
  Age: 67 Year
  Sex: Female

DRUGS (12)
  1. KOMBIGLYCE [Concomitant]
     Dosage: 2.5/1000 MG
     Route: 048
  2. LEVEMIR [Concomitant]
     Active Substance: INSULIN DETEMIR
     Dosage: 48 IU (INTERNATIONAL UNIT) DAILY;
     Route: 058
  3. CYMBALTA [Suspect]
     Active Substance: DULOXETINE HYDROCHLORIDE
     Dosage: 30 MILLIGRAM DAILY;
     Route: 048
     Dates: start: 20150410, end: 20150412
  4. XIPAMIDE [Suspect]
     Active Substance: XIPAMIDE
     Dosage: 10 MILLIGRAM DAILY;
     Route: 048
     Dates: end: 20150424
  5. FUROSEMIDE. [Suspect]
     Active Substance: FUROSEMIDE
     Dosage: 40 MILLIGRAM DAILY;
     Route: 048
     Dates: end: 20150424
  6. NOVORAPID [Concomitant]
     Active Substance: INSULIN ASPART
     Dosage: 12 IU (INTERNATIONAL UNIT) DAILY;
     Route: 058
  7. CYMBALTA [Suspect]
     Active Substance: DULOXETINE HYDROCHLORIDE
     Dosage: 60 MILLIGRAM DAILY;
     Route: 048
     Dates: start: 20150413, end: 20150424
  8. PANTOPRAZOL [Suspect]
     Active Substance: PANTOPRAZOLE SODIUM
     Dosage: 20 MILLIGRAM DAILY;
     Route: 048
  9. BISOPROLOL [Concomitant]
     Active Substance: BISOPROLOL
     Dosage: 2.5 MILLIGRAM DAILY;
     Route: 048
     Dates: start: 20150423
  10. ATORVASTATIN [Concomitant]
     Active Substance: ATORVASTATIN
     Dosage: 40 MILLIGRAM DAILY;
     Route: 048
  11. VALSARTAN. [Suspect]
     Active Substance: VALSARTAN
     Dosage: 80 MILLIGRAM DAILY;
     Route: 048
     Dates: end: 20150424
  12. BISOPROLOL [Concomitant]
     Active Substance: BISOPROLOL
     Dosage: 10 MILLIGRAM DAILY;
     Route: 048
     Dates: end: 20150422

REACTIONS (1)
  - Hyponatraemia [Recovered/Resolved]

NARRATIVE: CASE EVENT DATE: 20150413
